FAERS Safety Report 12495252 (Version 8)
Quarter: 2020Q3

REPORT INFORMATION
  Report Type: Spontaneous
  Country: US (occurrence: US)
  Receive Date: 20160624
  Receipt Date: 20200911
  Transmission Date: 20201102
  Serious: No
  Sender: FDA-Public Use
  Company Number: US-PFIZER INC-2016288607

PATIENT
  Age: 84 Year
  Sex: Female
  Weight: 53.97 kg

DRUGS (9)
  1. GENOTROPIN MQ [Suspect]
     Active Substance: SOMATROPIN
     Indication: MUSCLE ATROPHY
     Dosage: 0.2 MG, 1X/DAY
     Route: 058
     Dates: start: 2011
  2. GENOTROPIN MQ [Suspect]
     Active Substance: SOMATROPIN
     Indication: SKIN LACERATION
     Dosage: 0.2 MG, DAILY
     Route: 058
     Dates: start: 201301
  3. SYNTHROID [Concomitant]
     Active Substance: LEVOTHYROXINE SODIUM
     Indication: PITUITARY TUMOUR
     Dosage: 88 UG, 1X/DAY
     Dates: start: 200306
  4. SIMVASTATIN. [Concomitant]
     Active Substance: SIMVASTATIN
     Indication: BLOOD CHOLESTEROL INCREASED
     Dosage: 20 MG, 1X/DAY, AT BEDITME
  5. GENOTROPIN MQ [Suspect]
     Active Substance: SOMATROPIN
     Indication: MALIGNANT PITUITARY TUMOUR
  6. TIMOLOL. [Concomitant]
     Active Substance: TIMOLOL
     Indication: MACULAR DEGENERATION
  7. GENOTROPIN MQ [Suspect]
     Active Substance: SOMATROPIN
     Indication: GROWTH HORMONE DEFICIENCY
  8. TIMOLOL. [Concomitant]
     Active Substance: TIMOLOL
     Indication: GLAUCOMA
     Dosage: 0.5 %, UNK(1 DROP IN EACH EYE TWICE A DAY)
  9. GENOTROPIN MQ [Suspect]
     Active Substance: SOMATROPIN
     Indication: HYPOPITUITARISM

REACTIONS (10)
  - Fall [Unknown]
  - Contusion [Unknown]
  - Product dose omission issue [Unknown]
  - Balance disorder [Unknown]
  - Device issue [Unknown]
  - Head injury [Unknown]
  - Intentional product misuse [Unknown]
  - Drug ineffective [Unknown]
  - Weight decreased [Unknown]
  - Hypoacusis [Unknown]

NARRATIVE: CASE EVENT DATE: 2013
